FAERS Safety Report 11459792 (Version 2)
Quarter: 2016Q1

REPORT INFORMATION
  Report Type: Report from Study
  Country: KR (occurrence: KR)
  Receive Date: 20150904
  Receipt Date: 20160330
  Transmission Date: 20160525
  Serious: Yes (Death, Other)
  Sender: FDA-Public Use
  Company Number: KR-OTSUKA-JP-2014-19986

PATIENT
  Age: 80 Year
  Sex: Male

DRUGS (15)
  1. DOBUTAMIN [Concomitant]
     Active Substance: DOBUTAMINE HYDROCHLORIDE
     Indication: HYPONATRAEMIA
  2. FUROSEMIDE. [Concomitant]
     Active Substance: FUROSEMIDE
     Indication: HYPERVOLAEMIA
     Dosage: 240 MG, QD
     Route: 048
     Dates: start: 20141213
  3. FUROSEMIDE. [Concomitant]
     Active Substance: FUROSEMIDE
     Indication: HYPONATRAEMIA
     Dosage: 120 MG, QD
     Route: 042
     Dates: start: 20141209, end: 20141213
  4. DIGOXIN. [Concomitant]
     Active Substance: DIGOXIN
     Indication: HYPERVOLAEMIA
     Dosage: 0.125 MG, QD
     Route: 048
     Dates: start: 20141211, end: 20141212
  5. ISOSORBIDE DINITRATE. [Concomitant]
     Active Substance: ISOSORBIDE DINITRATE
     Indication: HYPERVOLAEMIA
     Dosage: 40 MG, QD
     Route: 048
     Dates: start: 20140813
  6. DONEPEZIL. [Concomitant]
     Active Substance: DONEPEZIL
     Indication: HYPERVOLAEMIA
     Dosage: 10 MG, QD
     Route: 048
     Dates: start: 20140618
  7. DONEPEZIL. [Concomitant]
     Active Substance: DONEPEZIL
     Indication: HYPONATRAEMIA
  8. GLIMEPIRIDE. [Concomitant]
     Active Substance: GLIMEPIRIDE
     Indication: HYPONATRAEMIA
     Dosage: 2 MG, QD
     Route: 048
     Dates: start: 20141210, end: 20141210
  9. DOBUTAMIN [Concomitant]
     Active Substance: DOBUTAMINE HYDROCHLORIDE
     Indication: HYPERVOLAEMIA
     Dosage: 500 MG, QD
     Route: 042
     Dates: start: 20141128
  10. TRIMETAZIDINE [Concomitant]
     Active Substance: TRIMETAZIDINE
     Indication: PROPHYLAXIS
     Dosage: 70 MG, QD
     Route: 048
     Dates: start: 20140813
  11. AMBROXOL [Concomitant]
     Active Substance: AMBROXOL
     Indication: PROPHYLAXIS
     Dosage: 90 MG, QD
     Route: 048
     Dates: start: 20140813
  12. TOLVAPTAN [Suspect]
     Active Substance: TOLVAPTAN
     Indication: HYPERVOLAEMIA
     Dosage: 15 MG, QD
     Route: 048
     Dates: start: 20141210, end: 20141212
  13. TOLVAPTAN [Suspect]
     Active Substance: TOLVAPTAN
     Indication: HYPONATRAEMIA
  14. ISOSORBIDE DINITRATE. [Concomitant]
     Active Substance: ISOSORBIDE DINITRATE
     Indication: HYPONATRAEMIA
  15. DIGOXIN. [Concomitant]
     Active Substance: DIGOXIN
     Indication: HYPONATRAEMIA
     Dosage: 0.25 MG, QD
     Route: 048
     Dates: start: 20141209, end: 20141210

REACTIONS (3)
  - Ventricular tachycardia [Not Recovered/Not Resolved]
  - Cardiac arrest [Not Recovered/Not Resolved]
  - Cardiac failure [Fatal]

NARRATIVE: CASE EVENT DATE: 20141211
